FAERS Safety Report 4922513-6 (Version None)
Quarter: 2006Q1

REPORT INFORMATION
  Report Type: 
  Country: None (occurrence: None)
  Receive Date: 20060224
  Receipt Date: 20060207
  Transmission Date: 20060701
  Serious: Yes (Hospitalization)
  Sender: FDA-Public Use
  Company Number: JP-ROCHE-436021

PATIENT
  Age: 50 Year
  Sex: Male
  Weight: 42 kg

DRUGS (3)
  1. TAMIFLU [Suspect]
     Indication: INFLUENZA
     Route: 048
     Dates: start: 20060116, end: 20060116
  2. TAMIFLU [Suspect]
     Route: 048
     Dates: start: 20060117, end: 20060120
  3. TAMIFLU [Suspect]
     Route: 048
     Dates: start: 20060121, end: 20060121

REACTIONS (3)
  - DRUG INEFFECTIVE [None]
  - LYMPHOCYTE STIMULATION TEST POSITIVE [None]
  - PNEUMONIA [None]
